FAERS Safety Report 12824013 (Version 1)
Quarter: 2016Q4

REPORT INFORMATION
  Report Type: Spontaneous
  Country: US (occurrence: US)
  Receive Date: 20161006
  Receipt Date: 20161006
  Transmission Date: 20170207
  Serious: Yes (Disabling)
  Sender: FDA-Public Use
  Company Number: None

PATIENT
  Age: 32 Year
  Sex: Female
  Weight: 69.75 kg

DRUGS (6)
  1. BUPROPION SR [Suspect]
     Active Substance: BUPROPION
     Indication: DEPRESSION
     Dosage: ?          QUANTITY:1 TABLET(S);?
     Route: 048
     Dates: start: 20160315, end: 20160331
  2. IBUPROFEN. [Concomitant]
     Active Substance: IBUPROFEN
  3. DAILY WOMENS VITAMIN [Concomitant]
  4. ADDERALL [Suspect]
     Active Substance: AMPHETAMINE ASPARTATE\AMPHETAMINE SULFATE\DEXTROAMPHETAMINE SACCHARATE\DEXTROAMPHETAMINE SULFATE
  5. VALSARTAN HCTZ [Concomitant]
     Active Substance: HYDROCHLOROTHIAZIDE\VALSARTAN
  6. CRANBERRY PILLS [Concomitant]

REACTIONS (6)
  - Anger [None]
  - Anxiety [None]
  - Emotional disorder [None]
  - Product substitution issue [None]
  - Depression [None]
  - Crying [None]

NARRATIVE: CASE EVENT DATE: 20160319
